FAERS Safety Report 10375961 (Version 3)
Quarter: 2014Q3

REPORT INFORMATION
  Report Type: Report from Study
  Country: JP (occurrence: JP)
  Receive Date: 20140811
  Receipt Date: 20140910
  Transmission Date: 20150326
  Serious: Yes (Death, Life-Threatening, Hospitalization)
  Sender: FDA-Public Use
  Company Number: JP-ACTELION-A-CH2014-101558

PATIENT
  Age: 44 Year
  Sex: Female
  Weight: 27.6 kg

DRUGS (12)
  1. TRACLEER [Suspect]
     Active Substance: BOSENTAN\BOSENTAN MONOHYDRATE
     Dosage: 62.5 MG, BID
     Route: 048
     Dates: start: 20120803, end: 20120812
  2. ALFACALCIDOL [Concomitant]
     Active Substance: ALFACALCIDOL
  3. FUROSEMIDE. [Concomitant]
     Active Substance: FUROSEMIDE
  4. TAZOBACTAM SODIUM [Suspect]
     Active Substance: TAZOBACTAM SODIUM
     Indication: PNEUMONIA
     Dosage: UNK
     Route: 042
     Dates: start: 20130613, end: 20130624
  5. DIMETICONE [Concomitant]
     Active Substance: DIMETHICONE
  6. OXYGEN. [Concomitant]
     Active Substance: OXYGEN
  7. SILDENAFIL [Concomitant]
     Active Substance: SILDENAFIL
  8. BENPROPERINE PHOSPHATE [Concomitant]
     Active Substance: BENPROPERINE PHOSPHATE
  9. TRACLEER [Suspect]
     Active Substance: BOSENTAN\BOSENTAN MONOHYDRATE
     Indication: PULMONARY ARTERIAL HYPERTENSION
     Dosage: 125 MG, BID
     Route: 048
     Dates: start: 20121211, end: 20130527
  10. PIRFENIDONE [Concomitant]
     Active Substance: PIRFENIDONE
  11. MAGNESIUM OXIDE. [Concomitant]
     Active Substance: MAGNESIUM OXIDE
  12. LANSOPRAZOLE. [Concomitant]
     Active Substance: LANSOPRAZOLE

REACTIONS (10)
  - Condition aggravated [Fatal]
  - Cardiac failure [Recovering/Resolving]
  - Alanine aminotransferase increased [Recovering/Resolving]
  - Aspartate aminotransferase increased [Recovering/Resolving]
  - Dyspnoea [Fatal]
  - Bronchitis [Recovering/Resolving]
  - Liver disorder [Recovering/Resolving]
  - Decreased appetite [Recovering/Resolving]
  - Interstitial lung disease [Fatal]
  - Scleroderma [Fatal]

NARRATIVE: CASE EVENT DATE: 20120812
